FAERS Safety Report 6361169-5 (Version None)
Quarter: 2009Q3

REPORT INFORMATION
  Report Type: 
  Country: None (occurrence: None)
  Receive Date: 20090918
  Receipt Date: 20090824
  Transmission Date: 20100115
  Serious: Yes (Death, Life-Threatening, Hospitalization, Other)
  Sender: FDA-Public Use
  Company Number: US-BAYER-US-2005-001203

PATIENT
  Age: 63 Year
  Sex: Male
  Weight: 91 kg

DRUGS (9)
  1. ZEVALIN [Suspect]
     Indication: NON-HODGKIN'S LYMPHOMA
     Dosage: UNK, 1 DOSE
     Route: 042
     Dates: start: 20041102, end: 20041102
  2. ZEVALIN [Suspect]
     Dosage: UNIT DOSE: 32.8 MCI
     Route: 042
     Dates: start: 20041109, end: 20041109
  3. INDIUM (111 IN) [Suspect]
     Indication: NON-HODGKIN'S LYMPHOMA
     Dosage: UNK, 1 DOSE
     Route: 042
     Dates: start: 20041102, end: 20041102
  4. YTTRIUM (90 Y) [Suspect]
     Indication: NON-HODGKIN'S LYMPHOMA
     Dosage: UNIT DOSE: 32.8 MCI
     Route: 042
     Dates: start: 20041109, end: 20041109
  5. RITUXIMAB [Suspect]
     Indication: NON-HODGKIN'S LYMPHOMA
     Dosage: UNIT DOSE: 520 MG
     Route: 042
     Dates: start: 20041102, end: 20041102
  6. RITUXIMAB [Suspect]
     Dosage: UNIT DOSE: 520 MG
     Route: 042
     Dates: start: 20041109, end: 20041109
  7. AVELOX [Suspect]
     Route: 048
     Dates: start: 20041113, end: 20041123
  8. DEXAMETHASONE [Concomitant]
     Dates: start: 20020701, end: 20020701
  9. RITUXIMAB [Concomitant]
     Dates: start: 20041102, end: 20041109

REACTIONS (5)
  - ATRIAL FIBRILLATION [None]
  - MULTI-ORGAN FAILURE [None]
  - NEUTROPENIA [None]
  - STAPHYLOCOCCAL SKIN INFECTION [None]
  - TOXIC EPIDERMAL NECROLYSIS [None]
